FAERS Safety Report 10392346 (Version 2)
Quarter: 2016Q1

REPORT INFORMATION
  Report Type: Spontaneous
  Country: US (occurrence: US)
  Receive Date: 20140819
  Receipt Date: 20160320
  Transmission Date: 20160525
  Serious: No
  Sender: FDA-Public Use
  Company Number: US-009507513-1408USA004882

PATIENT
  Age: 43 Year
  Sex: Male

DRUGS (6)
  1. ATIVAN [Concomitant]
     Active Substance: LORAZEPAM
     Dosage: 1 MG, BID
  2. TRAMADOL HYDROCHLORIDE. [Concomitant]
     Active Substance: TRAMADOL HYDROCHLORIDE
     Dosage: 1 TO 2 TABS AS NEEDED  (50 MG)
  3. PEGASYS [Suspect]
     Active Substance: PEGINTERFERON ALFA-2A
     Indication: CHRONIC HEPATITIS C
     Dosage: DAILY DOSE: 180 MICROGRAM , 1 IN 1 WEEK
     Route: 058
  4. VICTRELIS [Suspect]
     Active Substance: BOCEPREVIR
     Indication: CHRONIC HEPATITIS C
     Dosage: DAILY DOSE: Q7-9H WITH FOOD(BEGIN AT WEEK 5), 800 MG, 3 IN 1 DAY
     Route: 048
     Dates: start: 20120121
  5. RIBASPHERE RIBAPAK [Suspect]
     Active Substance: RIBAVIRIN
     Indication: CHRONIC HEPATITIS C
     Dosage: 600 MG, BID
     Route: 048
  6. FLEXERIL [Concomitant]
     Active Substance: CYCLOBENZAPRINE HYDROCHLORIDE
     Dosage: 1 DF, TID

REACTIONS (6)
  - Rhinorrhoea [Unknown]
  - Rash [Unknown]
  - Nasal oedema [Unknown]
  - Neutrophil count decreased [Unknown]
  - Malaise [Unknown]
  - Fatigue [Unknown]

NARRATIVE: CASE EVENT DATE: 201203
